FAERS Safety Report 4586524-5 (Version None)
Quarter: 2005Q1

REPORT INFORMATION
  Report Type: 
  Country: None (occurrence: None)
  Receive Date: 20050218
  Receipt Date: 20031231
  Transmission Date: 20050727
  Serious: Yes (Hospitalization)
  Sender: FDA-Public Use
  Company Number: US-BRISTOL-MYERS SQUIBB COMPANY-12467437

PATIENT
  Age: 86 Year
  Sex: Female
  Weight: 87 kg

DRUGS (10)
  1. TAXOL [Suspect]
     Indication: OVARIAN CANCER
     Route: 042
     Dates: start: 20031121, end: 20031121
  2. DETROL [Concomitant]
  3. TOPROL-XL [Concomitant]
     Dosage: 100 MG IN AM + 50 MG IN PM
  4. HYDROCHLOROTHIAZIDE [Concomitant]
  5. PERGOLIDE MESYLATE [Concomitant]
  6. ZOCOR [Concomitant]
     Dosage: @ HOUR OF SLEEP
  7. QUININE [Concomitant]
     Dosage: @ HOUR OF SLEEP
  8. ASPIRIN [Concomitant]
  9. M.V.I. [Concomitant]
  10. CALCIUM GLUCONATE [Concomitant]

REACTIONS (1)
  - PHLEBITIS [None]
